FAERS Safety Report 7088491-1 (Version None)
Quarter: 2010Q4

REPORT INFORMATION
  Report Type: 
  Country: None (occurrence: None)
  Receive Date: 20101108
  Receipt Date: 20101102
  Transmission Date: 20110411
  Serious: Yes (Hospitalization)
  Sender: FDA-Public Use
  Company Number: FR-ROCHE-738530

PATIENT
  Age: 54 Year
  Sex: Female

DRUGS (5)
  1. RIVOTRIL [Suspect]
     Route: 048
  2. SKENAN [Suspect]
     Dosage: FRENQUCY: ONCE
     Route: 048
  3. OXYCONTIN [Suspect]
     Dosage: DRUG: OXYCONTIN LP. FREQ: ONCE
     Route: 048
  4. OXYCONTIN [Suspect]
     Route: 048
  5. OMEPRAZOLE [Suspect]
     Dosage: ROUTE: PER ORAL
     Route: 048

REACTIONS (2)
  - COMA [None]
  - STRESS CARDIOMYOPATHY [None]
